FAERS Safety Report 5465588-0 (Version None)
Quarter: 2007Q3

REPORT INFORMATION
  Report Type: 
  Country: None (occurrence: None)
  Receive Date: 20070919
  Receipt Date: 20070919
  Transmission Date: 20080115
  Serious: Yes (Hospitalization, Other)
  Sender: FDA-Public Use
  Company Number: None

PATIENT
  Age: 35 Year
  Sex: Female
  Weight: 72.1219 kg

DRUGS (4)
  1. DICLOFENAC SODIUM [Suspect]
     Indication: HEADACHE
     Dosage: ONE TABLET TWICE DAILY PO
     Route: 048
     Dates: start: 20070831, end: 20070901
  2. DICLOFENAC SODIUM [Suspect]
     Indication: LABYRINTHITIS
     Dosage: ONE TABLET TWICE DAILY PO
     Route: 048
     Dates: start: 20070831, end: 20070901
  3. PREVACID [Concomitant]
  4. MYLANTA AND LIDOCAINE [Suspect]

REACTIONS (1)
  - GASTRIC HAEMORRHAGE [None]
